FAERS Safety Report 14515611 (Version 1)
Quarter: 2018Q1

REPORT INFORMATION
  Report Type: Spontaneous
  Country: US (occurrence: US)
  Receive Date: 20180210
  Receipt Date: 20180210
  Transmission Date: 20180509
  Serious: No
  Sender: FDA-Public Use
  Company Number: US-TEVA-2018-US-846957

PATIENT
  Sex: Female

DRUGS (1)
  1. PROAIR HFA [Suspect]
     Active Substance: ALBUTEROL SULFATE
     Indication: DRUG HYPERSENSITIVITY
     Dosage: ONE PUFF TWICE DAILY
     Dates: start: 201710, end: 201710

REACTIONS (2)
  - Chest discomfort [Unknown]
  - Burning sensation mucosal [Unknown]
